FAERS Safety Report 9512999 (Version 2)
Quarter: 2014Q2

REPORT INFORMATION
  Report Type: Spontaneous
  Country: US (occurrence: US)
  Receive Date: 20130910
  Receipt Date: 20140530
  Transmission Date: 20141212
  Serious: No
  Sender: FDA-Public Use
  Company Number: US-PFIZER INC-2013256333

PATIENT
  Sex: Female
  Weight: 59 kg

DRUGS (2)
  1. SUTENT [Suspect]
     Indication: PANCREATIC CARCINOMA
     Dosage: 37.5 MG (BY TAKING 3 CAPSULES OF 12.5MG), 1X/DAY
     Route: 048
     Dates: start: 201103
  2. SUTENT [Suspect]
     Indication: HEPATIC CANCER

REACTIONS (2)
  - Off label use [Unknown]
  - Therapeutic response changed [Unknown]
